FAERS Safety Report 10075401 (Version 1)
Quarter: 2014Q2

REPORT INFORMATION
  Report Type: Spontaneous
  Country: US (occurrence: None)
  Receive Date: 20140411
  Receipt Date: 20140411
  Transmission Date: 20141212
  Serious: Yes (Death, Hospitalization)
  Sender: FDA-Public Use
  Company Number: None

PATIENT
  Age: 72 Year
  Sex: Male
  Weight: 86 kg

DRUGS (3)
  1. ATORVASTATIN [Suspect]
     Indication: HYPERLIPIDAEMIA
     Route: 048
     Dates: start: 20140113, end: 20120212
  2. ATORVASTATIN [Suspect]
     Indication: TRANSIENT ISCHAEMIC ATTACK
     Route: 048
     Dates: start: 20140113, end: 20120212
  3. NIACIN [Suspect]
     Route: 048
     Dates: start: 20090908, end: 20140212

REACTIONS (15)
  - Activities of daily living impaired [None]
  - Unresponsive to stimuli [None]
  - Rhabdomyolysis [None]
  - Hypocalcaemia [None]
  - Cardiac arrest [None]
  - Renal tubular necrosis [None]
  - Lactic acidosis [None]
  - Continuous haemodiafiltration [None]
  - Systemic inflammatory response syndrome [None]
  - International normalised ratio increased [None]
  - White blood cell count increased [None]
  - Viral infection [None]
  - Autoimmune disorder [None]
  - Liver disorder [None]
  - Renal failure acute [None]
